FAERS Safety Report 4913595-6 (Version None)
Quarter: 2006Q1

REPORT INFORMATION
  Report Type: 
  Country: None (occurrence: None)
  Receive Date: 20060214
  Receipt Date: 20060214
  Transmission Date: 20060701
  Serious: Yes (Life-Threatening)
  Sender: FDA-Public Use
  Company Number: None

PATIENT
  Age: 46 Year
  Sex: Male
  Weight: 91.6266 kg

DRUGS (7)
  1. BUPIVACAINE [Suspect]
     Indication: NERVE BLOCK
     Dosage: 20 ML INTRA-ARTICULAR
     Route: 014
     Dates: start: 20051201, end: 20051201
  2. VERSED [Concomitant]
  3. LACTATED RINGER'S [Concomitant]
  4. ANZEMET [Concomitant]
  5. FENTANYL CITRATE [Concomitant]
  6. ROCURONIUM [Concomitant]
  7. CEFAZOLIN [Concomitant]

REACTIONS (6)
  - CONVULSION [None]
  - LUNG INFILTRATION [None]
  - PULMONARY OEDEMA [None]
  - RESPIRATORY ARREST [None]
  - RESPIRATORY DISTRESS [None]
  - RESPIRATORY FAILURE [None]
